FAERS Safety Report 6420211-3 (Version None)
Quarter: 2009Q4

REPORT INFORMATION
  Report Type: 
  Country: None (occurrence: None)
  Receive Date: 20091029
  Receipt Date: 20091016
  Transmission Date: 20100525
  Serious: Yes (Other)
  Sender: FDA-Public Use
  Company Number: PHEH2009US01139

PATIENT
  Sex: Female

DRUGS (2)
  1. RECLAST [Suspect]
     Dosage: UNK
     Dates: start: 20071128
  2. RECLAST [Suspect]
     Dosage: UNK
     Dates: start: 20080201

REACTIONS (11)
  - DENTAL CARE [None]
  - DYSPEPSIA [None]
  - GASTRIC DISORDER [None]
  - JAW DISORDER [None]
  - MASTICATION DISORDER [None]
  - MUSCULAR WEAKNESS [None]
  - MYALGIA [None]
  - RADICULITIS [None]
  - SPEECH DISORDER [None]
  - TOOTH DISORDER [None]
  - WALKING DISABILITY [None]
